FAERS Safety Report 14026159 (Version 2)
Quarter: 2017Q4

REPORT INFORMATION
  Report Type: Spontaneous
  Country: AU (occurrence: AU)
  Receive Date: 20170929
  Receipt Date: 20171006
  Transmission Date: 20180321
  Serious: Yes (Other)
  Sender: FDA-Public Use
  Company Number: AU-TORRENT-00000228

PATIENT
  Age: 75 Year
  Sex: Male

DRUGS (8)
  1. OXYCODONE [Concomitant]
     Active Substance: OXYCODONE
  2. ALLOPURINOL. [Concomitant]
     Active Substance: ALLOPURINOL
  3. INSULIN ASPART [Concomitant]
     Active Substance: INSULIN ASPART
  4. OLANZAPINE. [Suspect]
     Active Substance: OLANZAPINE
  5. HALOPERIDOL. [Concomitant]
     Active Substance: HALOPERIDOL
  6. FLUCONAZOLE. [Concomitant]
     Active Substance: FLUCONAZOLE
  7. MORPHINE [Concomitant]
     Active Substance: MORPHINE
  8. LOPERAMIDE [Concomitant]
     Active Substance: LOPERAMIDE

REACTIONS (3)
  - Cognitive disorder [Recovered/Resolved]
  - Delirium [Recovered/Resolved]
  - Off label use [Unknown]
